FAERS Safety Report 6909677-X (Version None)
Quarter: 2010Q3

REPORT INFORMATION
  Report Type: 
  Country: None (occurrence: None)
  Receive Date: 20100805
  Receipt Date: 20100726
  Transmission Date: 20110219
  Serious: Yes (Hospitalization, Other)
  Sender: FDA-Public Use
  Company Number: JP-ABBOTT-10P-087-0645682-00

PATIENT
  Sex: Female
  Weight: 58.1 kg

DRUGS (8)
  1. HUMIRA [Suspect]
     Indication: RHEUMATOID ARTHRITIS
     Route: 058
     Dates: start: 20100317, end: 20100414
  2. HUMIRA [Suspect]
     Route: 058
     Dates: start: 20100701
  3. ISONIAZID [Suspect]
     Indication: ANTIBIOTIC PROPHYLAXIS
     Dosage: 100MG DAILY
     Route: 048
     Dates: start: 20100317
  4. PREDNISOLONE [Concomitant]
     Indication: RHEUMATOID ARTHRITIS
     Route: 048
     Dates: start: 20100120, end: 20100517
  5. PREDNISOLONE [Concomitant]
     Route: 048
     Dates: start: 20100518
  6. METHOTREXATE [Concomitant]
     Indication: RHEUMATOID ARTHRITIS
     Dosage: 6MG/WEEK
     Route: 048
     Dates: start: 20100120
  7. CELECOXIB [Concomitant]
     Indication: RHEUMATOID ARTHRITIS
     Route: 048
     Dates: start: 20100217
  8. SULFAMETHOXAZOLE AND TRIMETHOPRIM [Concomitant]
     Indication: ANTIFUNGAL PROPHYLAXIS
     Route: 048
     Dates: start: 20100524

REACTIONS (7)
  - AIRWAY COMPLICATION OF ANAESTHESIA [None]
  - ASTHMA [None]
  - C-REACTIVE PROTEIN INCREASED [None]
  - CHEST X-RAY ABNORMAL [None]
  - EOSINOPHILIA [None]
  - HEPATIC FUNCTION ABNORMAL [None]
  - PYREXIA [None]
